FAERS Safety Report 8968954 (Version 1)
Quarter: 2012Q4

REPORT INFORMATION
  Report Type: 
  Country: US (occurrence: US)
  Receive Date: 20121218
  Receipt Date: 20121218
  Transmission Date: 20130627
  Serious: No
  Sender: FDA-Public Use
  Company Number: US-BRISTOL-MYERS SQUIBB COMPANY-16692071

PATIENT
  Age: 51 Year
  Sex: Female
  Weight: 56.69 kg

DRUGS (2)
  1. ABILIFY [Suspect]
     Indication: BIPOLAR DISORDER
     Dosage: Initial 5mg
  2. PAXIL [Concomitant]

REACTIONS (1)
  - Rash pruritic [Unknown]
